FAERS Safety Report 11273998 (Version 4)
Quarter: 2017Q2

REPORT INFORMATION
  Report Type: Report from Study
  Country: JP (occurrence: JP)
  Receive Date: 20150715
  Receipt Date: 20170420
  Transmission Date: 20170829
  Serious: Yes (Death, Life-Threatening, Hospitalization, Other)
  Sender: FDA-Public Use
  Company Number: JP-GILEAD-2015-0163219

PATIENT
  Age: 48 Year
  Sex: Male
  Weight: 56 kg

DRUGS (4)
  1. AMBRISENTAN [Suspect]
     Active Substance: AMBRISENTAN
     Dosage: 2.5 MG, QD
     Route: 048
     Dates: start: 20140904, end: 20140917
  2. AMBRISENTAN [Suspect]
     Active Substance: AMBRISENTAN
     Dosage: 5 MG, QD
     Route: 048
     Dates: start: 20140918, end: 20160605
  3. AMBRISENTAN [Suspect]
     Active Substance: AMBRISENTAN
     Indication: PULMONARY ARTERIAL HYPERTENSION
     Dosage: UNK
     Route: 048
  4. ADCIRCA [Concomitant]
     Active Substance: TADALAFIL
     Indication: PULMONARY ARTERIAL HYPERTENSION
     Dosage: UNK
     Dates: start: 20150813, end: 20160605

REACTIONS (6)
  - Interstitial lung disease [Unknown]
  - Off label use [Recovered/Resolved]
  - Duodenal ulcer [Recovered/Resolved]
  - Anaemia [Recovered/Resolved]
  - Renal impairment [Fatal]
  - Focal nodular hyperplasia [Fatal]

NARRATIVE: CASE EVENT DATE: 20140904
